FAERS Safety Report 14448939 (Version 1)
Quarter: 2018Q1

REPORT INFORMATION
  Report Type: Spontaneous
  Country: US (occurrence: US)
  Receive Date: 20180126
  Receipt Date: 20180126
  Transmission Date: 20180509
  Serious: Yes (Other)
  Sender: FDA-Public Use
  Company Number: US-OTSUKA-17404740

PATIENT
  Sex: Female
  Weight: 117 kg

DRUGS (1)
  1. ABILIFY [Suspect]
     Active Substance: ARIPIPRAZOLE
     Indication: PRODUCT USED FOR UNKNOWN INDICATION
     Dosage: REFILL:LOT NO:2H82838, EXPRN DATE:AUG 2015
     Route: 065
     Dates: start: 20130114

REACTIONS (2)
  - Drug ineffective [Unknown]
  - Hallucination [Unknown]
